FAERS Safety Report 5888570-8 (Version None)
Quarter: 2008Q3

REPORT INFORMATION
  Report Type: 
  Country: None (occurrence: None)
  Receive Date: 20080918
  Receipt Date: 20080826
  Transmission Date: 20090109
  Serious: Yes (Other)
  Sender: FDA-Public Use
  Company Number: US-B.I. PHARMACEUTICALS,INC./RIDGEFIELD-2008-DE-04633BY

PATIENT
  Sex: Male

DRUGS (6)
  1. FLOMAX [Suspect]
     Route: 048
  2. ASPIRIN [Suspect]
     Indication: PROPHYLAXIS
     Dosage: 81MG
     Route: 048
     Dates: start: 20050101, end: 20080527
  3. ONE A DAY MEN'S 50 PLUS ADVANTAGE [Suspect]
     Indication: VITAMIN SUPPLEMENTATION
     Dosage: 1ANZ
     Route: 048
     Dates: start: 20071101, end: 20080501
  4. FERROUS SULFATE TAB [Concomitant]
  5. SYNTHROID [Concomitant]
  6. OTHER UNSPECIFIED MEDICATIONS [Concomitant]

REACTIONS (4)
  - ENZYME ABNORMALITY [None]
  - FAECES DISCOLOURED [None]
  - HERNIA REPAIR [None]
  - STOMACH DISCOMFORT [None]
